FAERS Safety Report 8606087-4 (Version None)
Quarter: 2012Q3

REPORT INFORMATION
  Report Type: 
  Country: None (occurrence: None)
  Receive Date: 20120808
  Receipt Date: 20120808
  Transmission Date: 20120928
  Serious: No
  Sender: FDA-Public Use
  Company Number: None

PATIENT
  Sex: Female
  Weight: 54.8852 kg

DRUGS (9)
  1. DROSPIRENONE AND ETHINYL ESTRADIOL [Concomitant]
  2. QUETIAPINE FUMARATE [Suspect]
     Indication: BIPOLAR DISORDER
     Dosage: QUETIAPINE 100MG ORALLY
     Route: 048
  3. BUPROPRION HCL [Concomitant]
  4. TOPAMAX (BRAND) [Concomitant]
  5. LAMOTRIGINE [Concomitant]
  6. LAMICTAL [Concomitant]
  7. AMITRIPTYLINE HYDROCHLORIDE [Concomitant]
  8. NUVARING [Concomitant]
  9. LORAZEPAM [Concomitant]

REACTIONS (7)
  - DRUG INEFFECTIVE [None]
  - MANIA [None]
  - INSOMNIA [None]
  - PRODUCT SUBSTITUTION ISSUE [None]
  - HEADACHE [None]
  - HYPOAESTHESIA [None]
  - ABDOMINAL PAIN UPPER [None]
